FAERS Safety Report 25497706 (Version 2)
Quarter: 2025Q3

REPORT INFORMATION
  Report Type: Spontaneous
  Country: IN (occurrence: IN)
  Receive Date: 20250701
  Receipt Date: 20250714
  Transmission Date: 20251021
  Serious: Yes (Death, Life-Threatening, Hospitalization, Other)
  Sender: ALKEM
  Company Number: None

PATIENT
  Age: 45 Year
  Sex: Male

DRUGS (1)
  1. TACROLIMUS [Suspect]
     Active Substance: TACROLIMUS
     Indication: Immunosuppressant drug therapy
     Dosage: 1 MILLIGRAM, QD (LOW DOSES)
     Route: 065
     Dates: start: 2021

REACTIONS (4)
  - Immunosuppressant drug level increased [Fatal]
  - Sepsis [Fatal]
  - COVID-19 [Fatal]
  - Fungal infection [Fatal]
